FAERS Safety Report 7108320-7 (Version None)
Quarter: 2010Q4

REPORT INFORMATION
  Report Type: 
  Country: None (occurrence: None)
  Receive Date: 20101117
  Receipt Date: 20101104
  Transmission Date: 20110411
  Serious: Yes (Hospitalization)
  Sender: FDA-Public Use
  Company Number: DE-GENENTECH-305538

PATIENT
  Sex: Female
  Weight: 93 kg

DRUGS (16)
  1. RITUXIMAB [Suspect]
     Indication: B-CELL LYMPHOMA
     Dosage: 675 MG, Q4W
     Route: 042
     Dates: start: 20100705, end: 20100802
  2. RITUXIMAB [Suspect]
     Dosage: 675 MG, Q4W
     Route: 042
     Dates: start: 20100817
  3. MITOXANTRONE [Suspect]
     Indication: B-CELL LYMPHOMA
     Dosage: 14 MG, Q4W
     Route: 042
     Dates: start: 20100706, end: 20100803
  4. MITOXANTRONE [Suspect]
     Dosage: 14 MG, Q4W
     Route: 042
     Dates: start: 20100818
  5. CHLORAMBUCIL [Suspect]
     Indication: B-CELL LYMPHOMA
     Dosage: UNK
     Route: 048
     Dates: start: 20100706, end: 20100803
  6. CHLORAMBUCIL [Suspect]
     Dosage: UNK
     Route: 048
     Dates: start: 20100818
  7. PREDNISONE [Suspect]
     Indication: B-CELL LYMPHOMA
     Dosage: 45 MG, Q4W
     Route: 048
     Dates: start: 20100706, end: 20100803
  8. PREDNISONE [Suspect]
     Dosage: 45 MG, Q4W
     Route: 048
     Dates: start: 20100818
  9. EUTHYROX [Concomitant]
     Indication: PRODUCT USED FOR UNKNOWN INDICATION
     Dosage: UNK
     Dates: start: 19950101
  10. RAMIPRIL [Concomitant]
     Indication: PRODUCT USED FOR UNKNOWN INDICATION
     Dosage: UNK
     Dates: start: 20050101
  11. VERAPAMIL [Concomitant]
     Indication: PRODUCT USED FOR UNKNOWN INDICATION
     Dosage: UNK
     Dates: start: 20050101
  12. LEVODOPA [Concomitant]
     Indication: PRODUCT USED FOR UNKNOWN INDICATION
     Dosage: UNK
     Dates: start: 20000101
  13. FORMOTEROL FUMARATE [Concomitant]
     Indication: PRODUCT USED FOR UNKNOWN INDICATION
     Dosage: UNK
     Dates: start: 20000101
  14. IPRATROPIUMBROMID [Concomitant]
     Indication: PRODUCT USED FOR UNKNOWN INDICATION
     Dosage: UNK
     Dates: start: 20000101
  15. TIOTROPIUM BROMIDE [Concomitant]
     Indication: PRODUCT USED FOR UNKNOWN INDICATION
     Dosage: UNK
     Dates: start: 20000101
  16. PANTOPRAZOLE [Concomitant]
     Indication: PRODUCT USED FOR UNKNOWN INDICATION
     Dosage: UNK
     Dates: start: 20100621

REACTIONS (13)
  - ABDOMINAL PAIN [None]
  - C-REACTIVE PROTEIN INCREASED [None]
  - CLOSTRIDIUM TEST POSITIVE [None]
  - DEHYDRATION [None]
  - DIARRHOEA [None]
  - DYSPNOEA [None]
  - GENERAL PHYSICAL HEALTH DETERIORATION [None]
  - INFLAMMATION [None]
  - NAUSEA [None]
  - RED BLOOD CELL SEDIMENTATION RATE INCREASED [None]
  - RESTLESSNESS [None]
  - VOMITING [None]
  - WHITE BLOOD CELL COUNT DECREASED [None]
